FAERS Safety Report 24571028 (Version 2)
Quarter: 2024Q4

REPORT INFORMATION
  Report Type: Report from Study
  Country: US (occurrence: US)
  Receive Date: 20241101
  Receipt Date: 20241112
  Transmission Date: 20250115
  Serious: Yes (Hospitalization, Other)
  Sender: ABBVIE
  Company Number: US-ABBVIE-5983459

PATIENT
  Age: 70 Year
  Sex: Female
  Weight: 113 kg

DRUGS (4)
  1. LINZESS [Suspect]
     Active Substance: LINACLOTIDE
     Indication: Irritable bowel syndrome
     Route: 048
     Dates: start: 202404
  2. HYDROXYCHLOROQUINE [Concomitant]
     Active Substance: HYDROXYCHLOROQUINE
     Indication: Sjogren^s syndrome
     Route: 048
  3. MEDROXYPROGESTERONE [Concomitant]
     Active Substance: MEDROXYPROGESTERONE
     Indication: Endometrial hyperplasia
     Route: 048
  4. LEVOTHYROXINE [Concomitant]
     Active Substance: LEVOTHYROXINE
     Indication: Hypothyroidism
     Route: 048

REACTIONS (2)
  - Carpal tunnel syndrome [Recovered/Resolved]
  - Appendicitis [Recovered/Resolved]

NARRATIVE: CASE EVENT DATE: 20240101
